FAERS Safety Report 18337301 (Version 2)
Quarter: 2020Q4

REPORT INFORMATION
  Report Type: Spontaneous
  Country: DE (occurrence: DE)
  Receive Date: 20201002
  Receipt Date: 20201215
  Transmission Date: 20210113
  Serious: Yes (Other)
  Sender: FDA-Public Use
  Company Number: DE-BEH-2020122852

PATIENT
  Age: 54 Year
  Sex: Female

DRUGS (3)
  1. AMBRISENTAN [Concomitant]
     Active Substance: AMBRISENTAN
     Indication: PRODUCT USED FOR UNKNOWN INDICATION
     Dosage: UNK
     Route: 048
     Dates: start: 201909
  2. HUMAN FACTOR VIII VWF (INN) [Suspect]
     Active Substance: HUMAN COAGULATION FACTOR VIII/VON WILLEBRAND FACTOR COMPLEX
     Indication: VON WILLEBRAND^S DISEASE
     Dosage: UNK, PRN
     Route: 065
     Dates: start: 201905
  3. HUMAN FACTOR VIII VWF (INN) [Suspect]
     Active Substance: HUMAN COAGULATION FACTOR VIII/VON WILLEBRAND FACTOR COMPLEX
     Indication: PROPHYLAXIS
     Dosage: PROPHYLAXIS
     Route: 065
     Dates: start: 201905

REACTIONS (4)
  - Raynaud^s phenomenon [Unknown]
  - Pulmonary arterial hypertension [Unknown]
  - Drug ineffective [Unknown]
  - Coagulation factor VIII level increased [Unknown]

NARRATIVE: CASE EVENT DATE: 2019
